FAERS Safety Report 7255759-5 (Version None)
Quarter: 2011Q1

REPORT INFORMATION
  Report Type: 
  Country: None (occurrence: None)
  Receive Date: 20110129
  Receipt Date: 20100825
  Transmission Date: 20110831
  Serious: No
  Sender: FDA-Public Use
  Company Number: US-ABBOTT-10P-163-0667549-00

PATIENT
  Sex: Male
  Weight: 81.72 kg

DRUGS (3)
  1. SINGULAIR [Concomitant]
     Indication: HYPERSENSITIVITY
  2. HUMIRA [Suspect]
     Indication: PSORIASIS
     Dates: start: 20100630, end: 20100716
  3. UNKNOWN STEROIDS [Concomitant]
     Indication: PSORIASIS
     Route: 061

REACTIONS (2)
  - CHILLS [None]
  - RASH [None]
